FAERS Safety Report 13372491 (Version 1)
Quarter: 2017Q1

REPORT INFORMATION
  Report Type: Spontaneous
  Country: US (occurrence: US)
  Receive Date: 20170327
  Receipt Date: 20170327
  Transmission Date: 20170429
  Serious: No
  Sender: FDA-Public Use
  Company Number: US-ASTRAZENECA-2017SE28446

PATIENT
  Age: 66 Year
  Sex: Female
  Weight: 56.7 kg

DRUGS (3)
  1. PULMICORT TURBUHALER [Suspect]
     Active Substance: BUDESONIDE
     Indication: ASTHMA
     Dosage: 0.5MG BID AS NEEDED FOR 10 DAYS TO 2 WEEKS
     Route: 055
  2. PULMICORT TURBUHALER [Suspect]
     Active Substance: BUDESONIDE
     Indication: ASTHMA
     Dosage: 180 MCG 2 PUFFS (360 MCG) BID
     Route: 055
     Dates: start: 2006
  3. PULMICORT TURBUHALER [Suspect]
     Active Substance: BUDESONIDE
     Indication: ASTHMA
     Dosage: 0.5MG BID AS NEEDED BUDESONIDE RESPULES GENERIC
     Route: 055

REACTIONS (4)
  - Cough [Unknown]
  - Discomfort [Unknown]
  - Product use issue [Unknown]
  - Respiratory tract infection [Unknown]

NARRATIVE: CASE EVENT DATE: 201703
